FAERS Safety Report 7263860-5 (Version None)
Quarter: 2011Q1

REPORT INFORMATION
  Report Type: 
  Country: None (occurrence: None)
  Receive Date: 20110130
  Receipt Date: 20101207
  Transmission Date: 20110831
  Serious: No
  Sender: FDA-Public Use
  Company Number: US-ABBOTT-10P-163-0690040-00

PATIENT
  Sex: Female

DRUGS (2)
  1. CALAN [Concomitant]
     Indication: HYPERTENSION
  2. HUMIRA [Suspect]
     Indication: RHEUMATOID ARTHRITIS
     Dates: start: 20100925

REACTIONS (5)
  - ARTHRALGIA [None]
  - SKIN DISCOLOURATION [None]
  - NERVOUSNESS [None]
  - BACK PAIN [None]
  - JOINT SWELLING [None]
